FAERS Safety Report 21344609 (Version 2)
Quarter: 2022Q4

REPORT INFORMATION
  Report Type: Spontaneous
  Country: US (occurrence: US)
  Receive Date: 20220916
  Receipt Date: 20221024
  Transmission Date: 20230113
  Serious: Yes (Hospitalization, Other)
  Sender: FDA-Public Use
  Company Number: US-INCYTE CORPORATION-2022IN008884

PATIENT

DRUGS (2)
  1. JAKAFI [Suspect]
     Active Substance: RUXOLITINIB
     Indication: Polycythaemia vera
     Dosage: 10 MILLIGRAM, BID
     Route: 048
     Dates: start: 20220623
  2. JAKAFI [Suspect]
     Active Substance: RUXOLITINIB
     Dosage: 10 MILLIGRAM, BID
     Route: 048
     Dates: start: 20220623

REACTIONS (8)
  - Pneumonia [Recovering/Resolving]
  - Skin disorder [Unknown]
  - Rash [Unknown]
  - Psychiatric symptom [Unknown]
  - Hypoaesthesia [Unknown]
  - Herpes zoster [Unknown]
  - Haemoglobin decreased [Unknown]
  - Platelet count decreased [Unknown]
